FAERS Safety Report 13963098 (Version 1)
Quarter: 2017Q3

REPORT INFORMATION
  Report Type: Spontaneous
  Country: US (occurrence: US)
  Receive Date: 20170913
  Receipt Date: 20170913
  Transmission Date: 20171128
  Serious: No
  Sender: FDA-Public Use
  Company Number: US-PFIZER INC-2017393811

PATIENT
  Age: 46 Year
  Sex: Female

DRUGS (1)
  1. XELJANZ XR [Suspect]
     Active Substance: TOFACITINIB CITRATE
     Dosage: 11 MG, UNK

REACTIONS (17)
  - Blood pressure increased [Unknown]
  - Red cell distribution width decreased [Unknown]
  - Periodic limb movement disorder [Unknown]
  - Mean platelet volume decreased [Unknown]
  - Vitamin D decreased [Unknown]
  - Neck pain [Unknown]
  - Myalgia [Unknown]
  - Muscle spasms [Unknown]
  - Red blood cell sedimentation rate increased [Unknown]
  - Vitamin B12 decreased [Unknown]
  - Sleep apnoea syndrome [Unknown]
  - Mean cell haemoglobin concentration decreased [Unknown]
  - Fatigue [Unknown]
  - Cyst [Unknown]
  - Blood glucose increased [Unknown]
  - Blood urea decreased [Unknown]
  - Oedema peripheral [Unknown]
